FAERS Safety Report 23850402 (Version 1)
Quarter: 2024Q2

REPORT INFORMATION
  Report Type: Spontaneous
  Country: US (occurrence: US)
  Receive Date: 20240513
  Receipt Date: 20240513
  Transmission Date: 20240715
  Serious: No
  Sender: FDA-Public Use
  Company Number: US-ABBVIE-5750970

PATIENT
  Age: 4 Year
  Sex: Female

DRUGS (2)
  1. HUMIRA [Suspect]
     Active Substance: ADALIMUMAB
     Indication: Juvenile idiopathic arthritis
     Dosage: FORM STRENGTH: 40 MG
     Route: 058
     Dates: start: 202405
  2. HUMIRA [Suspect]
     Active Substance: ADALIMUMAB
     Dosage: FORM STRENGTH: 20 MG

REACTIONS (2)
  - Device issue [Not Recovered/Not Resolved]
  - Drug ineffective [Unknown]

NARRATIVE: CASE EVENT DATE: 20240501
